FAERS Safety Report 20546866 (Version 1)
Quarter: 2022Q1

REPORT INFORMATION
  Report Type: Spontaneous
  Country: US (occurrence: US)
  Receive Date: 20220303
  Receipt Date: 20220303
  Transmission Date: 20220423
  Serious: No
  Sender: FDA-Public Use
  Company Number: US-BRISTOL-MYERS SQUIBB COMPANY-BMS-2022-027551

PATIENT
  Age: 47 Year
  Sex: Female

DRUGS (3)
  1. ORENCIA [Suspect]
     Active Substance: ABATACEPT
     Indication: Psoriatic arthropathy
     Dosage: 1000 MILLIGRAM, Q4WK
     Route: 042
     Dates: start: 20210214
  2. ORENCIA [Suspect]
     Active Substance: ABATACEPT
     Indication: Psoriasis
  3. CIMZIA [Concomitant]
     Active Substance: CERTOLIZUMAB PEGOL
     Indication: Product used for unknown indication
     Dosage: 2 INJECTION EVERY 4 WEEKS
     Route: 058

REACTIONS (3)
  - Pruritus [Unknown]
  - Burning sensation [Unknown]
  - Pain [Unknown]
